FAERS Safety Report 18082630 (Version 1)
Quarter: 2020Q3

REPORT INFORMATION
  Report Type: Other
  Country: KR (occurrence: KR)
  Receive Date: 20200728
  Receipt Date: 20200728
  Transmission Date: 20201103
  Serious: Yes (Other)
  Sender: FDA-Public Use
  Company Number: KR-ROCHE-2633800

PATIENT
  Age: 51 Year
  Sex: Female

DRUGS (16)
  1. PERTUZUMAB. [Suspect]
     Active Substance: PERTUZUMAB
     Route: 065
     Dates: start: 20200703
  2. TYLENOL 8HR [Concomitant]
     Active Substance: ACETAMINOPHEN
     Route: 048
     Dates: start: 20200525, end: 20200529
  3. DOCETAXEL. [Suspect]
     Active Substance: DOCETAXEL
     Indication: BREAST CANCER
     Route: 042
     Dates: start: 20200523
  4. DOCETAXEL. [Suspect]
     Active Substance: DOCETAXEL
     Indication: CHEMOTHERAPY
  5. DEXAMETHASONE DISODIUM PHOSPHATE [Concomitant]
     Active Substance: DEXAMETHASONE SODIUM PHOSPHATE
     Indication: CHEMOTHERAPY SIDE EFFECT PROPHYLAXIS
     Route: 042
     Dates: start: 20200523
  6. CEFOBACTAM [Concomitant]
     Active Substance: CEFOPERAZONE SODIUM\SULBACTAM SODIUM
     Indication: PROPHYLAXIS
     Route: 042
     Dates: start: 20200623, end: 20200623
  7. GASTER (SOUTH KOREA) [Concomitant]
     Indication: CHEMOTHERAPY SIDE EFFECT PROPHYLAXIS
     Route: 048
     Dates: start: 20200523
  8. VARIDASE [Concomitant]
     Route: 048
     Dates: start: 20200525, end: 20200529
  9. TRASTUZUMAB. [Suspect]
     Active Substance: TRASTUZUMAB
     Indication: NEOADJUVANT THERAPY
  10. CEFAZOLIN [Concomitant]
     Active Substance: CEFAZOLIN
     Route: 042
     Dates: start: 20200525, end: 20200525
  11. PERTUZUMAB. [Suspect]
     Active Substance: PERTUZUMAB
     Indication: BREAST CANCER
     Route: 065
     Dates: start: 20200523
  12. TRASTUZUMAB. [Suspect]
     Active Substance: TRASTUZUMAB
     Indication: BREAST CANCER
     Route: 058
     Dates: start: 20200523
  13. MACPERAN [Concomitant]
     Active Substance: METOCLOPRAMIDE HYDROCHLORIDE
     Indication: CHEMOTHERAPY SIDE EFFECT PROPHYLAXIS
     Route: 048
     Dates: start: 20200523
  14. TOBRA [Concomitant]
     Indication: PROPHYLAXIS
     Route: 042
     Dates: start: 20200623, end: 20200623
  15. PERTUZUMAB. [Suspect]
     Active Substance: PERTUZUMAB
     Route: 065
     Dates: start: 20200613
  16. BONALING?A [Concomitant]
     Active Substance: DIMENHYDRINATE
     Indication: CHEMOTHERAPY SIDE EFFECT PROPHYLAXIS
     Route: 048
     Dates: start: 20200523

REACTIONS (4)
  - Dyspepsia [Recovering/Resolving]
  - Neutropenia [Recovered/Resolved]
  - Constipation [Recovered/Resolved]
  - Hepatitis [Recovering/Resolving]

NARRATIVE: CASE EVENT DATE: 20200613
